FAERS Safety Report 14263037 (Version 1)
Quarter: 2017Q4

REPORT INFORMATION
  Report Type: Spontaneous
  Country: NL (occurrence: NL)
  Receive Date: 20171208
  Receipt Date: 20171208
  Transmission Date: 20180321
  Serious: Yes (Hospitalization)
  Sender: FDA-Public Use
  Company Number: NL-ELI_LILLY_AND_COMPANY-NL201712001786

PATIENT
  Age: 63 Year
  Sex: Female

DRUGS (9)
  1. MOVICOLON [Concomitant]
     Active Substance: POLYETHYLENE GLYCOL 3350\POTASSIUM CHLORIDE\SODIUM BICARBONATE\SODIUM CHLORIDE
     Indication: PRODUCT USED FOR UNKNOWN INDICATION
     Dosage: UNK UNK, UNKNOWN
     Route: 065
     Dates: start: 20150424
  2. ABRAXANE [Suspect]
     Active Substance: PACLITAXEL
     Indication: PANCREATIC CARCINOMA
     Dosage: 230 UNK,3 TIMES PER 4WEEKS
     Route: 042
     Dates: start: 20140512
  3. ABRAXANE [Suspect]
     Active Substance: PACLITAXEL
     Dosage: UNK
  4. GEMCITABINE HYDROCHLORIDE. [Suspect]
     Active Substance: GEMCITABINE HYDROCHLORIDE
     Dosage: 1800 MG, 2 TIMES PER 4WEEKS
     Route: 042
     Dates: start: 20150105, end: 20150507
  5. OXYNORM [Suspect]
     Active Substance: OXYCODONE HYDROCHLORIDE
     Indication: ABDOMINAL PAIN
     Dosage: 5 MG, BID
     Route: 065
     Dates: start: 20150424
  6. NOVALGIN [Suspect]
     Active Substance: METAMIZOLE SODIUM
     Indication: ABDOMINAL PAIN
     Dosage: 500 MG, TID
     Route: 065
     Dates: start: 20150507, end: 20150510
  7. ABRAXANE [Suspect]
     Active Substance: PACLITAXEL
     Dosage: 170 MG,  3 TIMES PER 4WEEK
     Route: 042
     Dates: start: 20140818
  8. GEMCITABINE HYDROCHLORIDE. [Suspect]
     Active Substance: GEMCITABINE HYDROCHLORIDE
     Indication: PANCREATIC CARCINOMA
     Dosage: 1800 MG,3 TIMES PER4 WEEK
     Route: 042
     Dates: start: 20140512
  9. ABRAXANE [Suspect]
     Active Substance: PACLITAXEL
     Dosage: 170 UNK, 3 TIMES PER4 WEEKS
     Route: 042
     Dates: start: 20150105, end: 20150507

REACTIONS (4)
  - Vomiting [Unknown]
  - Constipation [Not Recovered/Not Resolved]
  - Dizziness [Unknown]
  - Nausea [Unknown]

NARRATIVE: CASE EVENT DATE: 20150508
